FAERS Safety Report 7308700-0 (Version None)
Quarter: 2011Q1

REPORT INFORMATION
  Report Type: 
  Country: None (occurrence: None)
  Receive Date: 20110223
  Receipt Date: 20110210
  Transmission Date: 20110831
  Serious: Yes (Other)
  Sender: FDA-Public Use
  Company Number: PHHY2011CH10972

PATIENT
  Age: 60 Year
  Sex: Female

DRUGS (1)
  1. CO-DIOVAN [Suspect]
     Indication: HYPERTENSION
     Dosage: VALSARTAN 80MG AND HYDROCHLOROTHIAZIDE 12.5MG
     Route: 048
     Dates: start: 20100101

REACTIONS (4)
  - ASTHENIA [None]
  - NECK PAIN [None]
  - MUSCULOSKELETAL PAIN [None]
  - DIZZINESS [None]
